FAERS Safety Report 9869208 (Version 3)
Quarter: 2014Q1

REPORT INFORMATION
  Report Type: Spontaneous
  Country: JP (occurrence: JP)
  Receive Date: 20140205
  Receipt Date: 20140311
  Transmission Date: 20141002
  Serious: Yes (Hospitalization)
  Sender: FDA-Public Use
  Company Number: JP-AMGEN-JPNSP2014007587

PATIENT
  Age: 66 Year
  Sex: Female
  Weight: 43 kg

DRUGS (5)
  1. VECTIBIX [Suspect]
     Indication: RECTAL CANCER
     Dosage: 200 MG, Q2WK
     Route: 041
     Dates: start: 20130228, end: 20130314
  2. ELPLAT [Suspect]
     Indication: RECTAL CANCER
     Dosage: 90 MG, Q2WK
     Route: 041
     Dates: start: 20130228, end: 20130314
  3. 5-FU /00098801/ [Suspect]
     Indication: RECTAL CANCER
     Dosage: 400 MG, Q2WK
     Route: 040
     Dates: start: 20130228, end: 20130316
  4. 5-FU /00098801/ [Suspect]
     Dosage: 1200 MG, Q2WK
     Route: 041
     Dates: start: 20130228, end: 20130316
  5. LEVOFOLINATE [Suspect]
     Indication: RECTAL CANCER
     Dosage: 200 MG, Q2WK
     Route: 041
     Dates: start: 20130228, end: 20130314

REACTIONS (1)
  - Posterior reversible encephalopathy syndrome [Recovered/Resolved]
